FAERS Safety Report 5710201-8 (Version None)
Quarter: 2008Q2

REPORT INFORMATION
  Report Type: 
  Country: None (occurrence: None)
  Receive Date: 20080418
  Receipt Date: 20080407
  Transmission Date: 20081010
  Serious: Yes (Other)
  Sender: FDA-Public Use
  Company Number: GB-PFIZER INC-2008007662

PATIENT
  Sex: Male

DRUGS (2)
  1. CHAMPIX [Suspect]
     Indication: SMOKING CESSATION THERAPY
     Route: 048
     Dates: start: 20080109, end: 20080123
  2. PROPRANOLOL [Concomitant]

REACTIONS (4)
  - EMOTIONAL DISORDER [None]
  - FEELING ABNORMAL [None]
  - MORBID THOUGHTS [None]
  - SUICIDAL IDEATION [None]
